FAERS Safety Report 25399194 (Version 1)
Quarter: 2025Q2

REPORT INFORMATION
  Report Type: Spontaneous
  Country: US (occurrence: US)
  Receive Date: 20250605
  Receipt Date: 20250605
  Transmission Date: 20250717
  Serious: Yes (Hospitalization, Other)
  Sender: PROCTER AND GAMBLE
  Company Number: US-PROCTER+GAMBLE-PH25007015

PATIENT
  Age: 28 Year
  Sex: Male

DRUGS (2)
  1. DIPHENHYDRAMINE HYDROCHLORIDE [Suspect]
     Active Substance: DIPHENHYDRAMINE HYDROCHLORIDE
     Route: 048
  2. WINE [Suspect]
     Active Substance: WINE
     Route: 048

REACTIONS (20)
  - Intentional overdose [Unknown]
  - Electrocardiogram QRS complex prolonged [Recovered/Resolved]
  - Pneumonia aspiration [Unknown]
  - Hypoxia [Unknown]
  - Hypotension [Recovering/Resolving]
  - Mental status changes [Unknown]
  - Conduction disorder [Recovered/Resolved]
  - Unresponsive to stimuli [Recovering/Resolving]
  - Ventricular tachycardia [Recovered/Resolved]
  - Critical illness [Recovering/Resolving]
  - Oxygen saturation decreased [Unknown]
  - Metabolic acidosis [Unknown]
  - pH body fluid decreased [Recovering/Resolving]
  - PCO2 increased [Unknown]
  - Blood lactic acid increased [Unknown]
  - Sinus tachycardia [Recovered/Resolved]
  - Cardiovascular disorder [Recovering/Resolving]
  - Hyperhidrosis [Unknown]
  - Peripheral coldness [Unknown]
  - Intentional product use issue [Unknown]
